FAERS Safety Report 9856372 (Version 1)
Quarter: 2014Q1

REPORT INFORMATION
  Report Type: Spontaneous
  Country: US (occurrence: US)
  Receive Date: 20140130
  Receipt Date: 20140130
  Transmission Date: 20141002
  Serious: No
  Sender: FDA-Public Use
  Company Number: US-PFIZER INC-2014027369

PATIENT
  Age: 27 Year
  Sex: Female
  Weight: 64.4 kg

DRUGS (6)
  1. LYRICA [Suspect]
     Indication: FIBROMYALGIA
     Dosage: 50 MG, 1X/DAY
     Route: 048
     Dates: end: 201401
  2. LYRICA [Suspect]
     Dosage: 100 MG (BY TAKING 2 CAPSULES OF 50MG), 1X/DAY
     Route: 048
     Dates: start: 201401
  3. HUMIRA [Concomitant]
     Dosage: UNK
  4. OMEPRAZOLE [Concomitant]
     Dosage: UNK
  5. APRISO [Concomitant]
     Dosage: UNK
  6. ENTOCORT [Concomitant]
     Dosage: UNK

REACTIONS (3)
  - Migraine [Unknown]
  - Headache [Unknown]
  - Insomnia [Unknown]
